FAERS Safety Report 19666324 (Version 2)
Quarter: 2021Q3

REPORT INFORMATION
  Report Type: Spontaneous
  Country: JP (occurrence: JP)
  Receive Date: 20210806
  Receipt Date: 20210922
  Transmission Date: 20211014
  Serious: Yes (Hospitalization, Other)
  Sender: FDA-Public Use
  Company Number: JP-BRISTOL-MYERS SQUIBB COMPANY-BMS-2021-076111

PATIENT
  Age: 80 Year
  Sex: Female

DRUGS (11)
  1. ELIQUIS [Suspect]
     Active Substance: APIXABAN
     Indication: CEREBROVASCULAR ACCIDENT PROPHYLAXIS
     Dosage: 5 MILLIGRAM, BID
     Route: 048
  2. ELIQUIS [Suspect]
     Active Substance: APIXABAN
     Dosage: UNAVAILABLE
  3. ARICEPT [Concomitant]
     Active Substance: DONEPEZIL HYDROCHLORIDE
     Indication: DEMENTIA
     Dosage: 5 MILLIGRAM, QD
     Route: 048
  4. GRAMALIL [Concomitant]
     Active Substance: TIAPRIDE HYDROCHLORIDE
     Indication: DEMENTIA
     Dosage: 25 MILLIGRAM, QD
     Route: 048
  5. ELIQUIS [Suspect]
     Active Substance: APIXABAN
     Dosage: UNAVAILABLE
  6. MAINTATE [Concomitant]
     Active Substance: BISOPROLOL FUMARATE
     Indication: CARDIAC FAILURE
     Dosage: 2.5 MILLIGRAM, BID
     Route: 048
  7. FUROSEMIDE. [Concomitant]
     Active Substance: FUROSEMIDE
     Indication: CARDIAC FAILURE
     Dosage: 20 MILLIGRAM, QD
     Route: 048
  8. ELIQUIS [Suspect]
     Active Substance: APIXABAN
     Dosage: UNAVAILABLE
  9. RENIVACE [Concomitant]
     Active Substance: ENALAPRIL
     Indication: CARDIAC FAILURE
     Dosage: 2.5 MILLIGRAM, QD
     Route: 048
  10. NIFEDIPINE. [Concomitant]
     Active Substance: NIFEDIPINE
     Indication: HYPERTENSION
     Dosage: 20 MILLIGRAM, QD
     Route: 048
  11. PAROXETINE [PAROXETINE HYDROCHLORIDE] [Concomitant]
     Active Substance: PAROXETINE HYDROCHLORIDE
     Indication: DEMENTIA
     Dosage: 30 MILLIGRAM, QD
     Route: 048

REACTIONS (2)
  - Cerebral infarction [Recovered/Resolved with Sequelae]
  - Acarodermatitis [Recovered/Resolved]

NARRATIVE: CASE EVENT DATE: 20160125
